FAERS Safety Report 17117448 (Version 1)
Quarter: 2019Q4

REPORT INFORMATION
  Report Type: Spontaneous
  Country: FR (occurrence: FR)
  Receive Date: 20191205
  Receipt Date: 20191205
  Transmission Date: 20200122
  Serious: Yes (Hospitalization)
  Sender: FDA-Public Use
  Company Number: FR-BAUSCH-BL-2019-063960

PATIENT
  Age: 34 Year
  Sex: Female
  Weight: 66 kg

DRUGS (3)
  1. LORAZEPAM. [Suspect]
     Active Substance: LORAZEPAM
     Indication: SUICIDE ATTEMPT
     Dosage: 3 BOX, 1 DOSE UNITS UNKNOWN, 1 TOTAL
     Route: 048
     Dates: start: 20180605, end: 20180605
  2. EPITOMAX [Suspect]
     Active Substance: TOPIRAMATE
     Indication: SUICIDE ATTEMPT
     Dosage: 1 BOX, 1 DOSE UNITS UNKNOWN, 1 TOTAL
     Route: 048
     Dates: start: 20180605, end: 20180605
  3. TEGRETOL [Suspect]
     Active Substance: CARBAMAZEPINE
     Indication: SUICIDE ATTEMPT
     Dosage: 2 BOX, 1 DOSE UNITS UNKNOWN, 1 TOTAL
     Route: 048
     Dates: start: 20180605, end: 20180605

REACTIONS (3)
  - Coma [Recovered/Resolved]
  - Toxicity to various agents [Recovered/Resolved]
  - Hypokalaemia [Recovered/Resolved]

NARRATIVE: CASE EVENT DATE: 20180605
